FAERS Safety Report 8115999-X (Version None)
Quarter: 2011Q4

REPORT INFORMATION
  Report Type: 
  Country: None (occurrence: None)
  Receive Date: 20111227
  Receipt Date: 20110907
  Transmission Date: 20120403
  Serious: Yes (Disabling, Other)
  Sender: FDA-Public Use
  Company Number: PHHY2011US62419

PATIENT
  Age: 39 Year
  Sex: Female

DRUGS (8)
  1. GABAPENTIN [Concomitant]
  2. NOVANTRON (MITOXANTRONE, MITOXANTRONE HYDROCHLORIDE) [Concomitant]
  3. DETROL LA [Concomitant]
  4. METHYLPREDNISOLONE [Concomitant]
  5. FAMPRIDINE (FAMPRIDINE) [Concomitant]
  6. GILENYA [Suspect]
     Indication: RELAPSING-REMITTING MULTIPLE SCLEROSIS
     Dosage: 0.5 MG, QD, ORAL
     Route: 048
     Dates: start: 20110701, end: 20110711
  7. NUVIGIL [Concomitant]
  8. TYSABRI [Concomitant]

REACTIONS (15)
  - MALAISE [None]
  - PAIN [None]
  - ENANTHEMA [None]
  - PRURITUS [None]
  - GAIT DISTURBANCE [None]
  - APHAGIA [None]
  - RASH [None]
  - GLOSSODYNIA [None]
  - CHILLS [None]
  - HERPES SIMPLEX [None]
  - FATIGUE [None]
  - STOMATITIS [None]
  - BALANCE DISORDER [None]
  - ORAL MUCOSAL ERUPTION [None]
  - LYMPHADENOPATHY [None]
